FAERS Safety Report 8008438-0 (Version None)
Quarter: 2011Q4

REPORT INFORMATION
  Report Type: 
  Country: None (occurrence: None)
  Receive Date: 20111227
  Receipt Date: 20111219
  Transmission Date: 20120403
  Serious: Yes (Death, Other)
  Sender: FDA-Public Use
  Company Number: JP-ROCHE-802093

PATIENT
  Sex: Male
  Weight: 52 kg

DRUGS (7)
  1. ALOSENN [Concomitant]
     Indication: CONSTIPATION
     Route: 048
     Dates: start: 20110818, end: 20110828
  2. XELODA [Suspect]
     Indication: METASTATIC GASTRIC CANCER
     Dosage: DOSAGE IS UNCERTAIN
     Route: 048
     Dates: start: 20110817, end: 20110828
  3. MYSER [Concomitant]
     Indication: PROPHYLAXIS
     Dosage: DOSAGE IS UNSERTAIN
     Route: 003
     Dates: start: 20110817, end: 20110817
  4. HIRUDOID [Concomitant]
     Dosage: DOSAGE IS UNSERTAIN
     Route: 003
     Dates: start: 20110817, end: 20110817
  5. CASANTHRANOL + DOCUSATE SODIUM [Concomitant]
     Indication: CONSTIPATION
     Route: 048
     Dates: start: 20110818, end: 20110828
  6. CISPLATIN [Suspect]
     Indication: METASTATIC GASTRIC CANCER
     Route: 041
     Dates: start: 20110817, end: 20110817
  7. EMEND [Concomitant]
     Route: 048
     Dates: start: 20110817, end: 20110817

REACTIONS (4)
  - ASCITES [None]
  - RENAL FAILURE ACUTE [None]
  - ABDOMINAL DISTENSION [None]
  - DISEASE PROGRESSION [None]
